FAERS Safety Report 5926237-8 (Version None)
Quarter: 2008Q4

REPORT INFORMATION
  Report Type: 
  Country: None (occurrence: None)
  Receive Date: 20081022
  Receipt Date: 20081017
  Transmission Date: 20090506
  Serious: Yes (Hospitalization)
  Sender: FDA-Public Use
  Company Number: JP-SP-2008-02839

PATIENT
  Age: 74 Year
  Sex: Male

DRUGS (2)
  1. IMMUCYST [Suspect]
     Indication: BLADDER CANCER
     Dosage: NOT REPORTED
     Route: 043
     Dates: start: 20080701, end: 20080724
  2. LEVOFLOXACIN HYDROCHLORIDE [Concomitant]
     Dates: start: 20080703

REACTIONS (2)
  - EPIDIDYMITIS [None]
  - PROSTATITIS [None]
